FAERS Safety Report 25353024 (Version 1)
Quarter: 2025Q2

REPORT INFORMATION
  Report Type: Spontaneous
  Country: CN (occurrence: CN)
  Receive Date: 20250523
  Receipt Date: 20250523
  Transmission Date: 20250717
  Serious: Yes (Hospitalization)
  Sender: COHERUS
  Company Number: CN-SHANGHAI JUNSHI BIOSCIENCES CO., LTD.-CN2025014178

PATIENT

DRUGS (9)
  1. TORIPALIMAB [Suspect]
     Active Substance: TORIPALIMAB
     Indication: Metastases to liver
     Dosage: 240 MG (D1), Q21D
     Route: 041
     Dates: start: 20250507
  2. TORIPALIMAB [Suspect]
     Active Substance: TORIPALIMAB
     Indication: Neuroendocrine carcinoma
  3. ETOPOSIDE [Suspect]
     Active Substance: ETOPOSIDE
     Indication: Metastases to liver
     Dosage: 100 MG (D1-D3, QD), EVERY 21 DAYS AS A CYCLE
     Route: 041
     Dates: start: 20250507
  4. ETOPOSIDE [Suspect]
     Active Substance: ETOPOSIDE
     Indication: Neuroendocrine carcinoma
  5. CARBOPLATIN [Suspect]
     Active Substance: CARBOPLATIN
     Indication: Metastases to liver
     Dosage: 400 MG (D1), Q21D
     Route: 041
     Dates: start: 20250507
  6. CARBOPLATIN [Suspect]
     Active Substance: CARBOPLATIN
     Indication: Neuroendocrine carcinoma
  7. SODIUM CHLORIDE [Concomitant]
     Active Substance: SODIUM CHLORIDE
     Indication: Medication dilution
     Dosage: 500 ML (D1-D3, QD), EVERY 21 DAYS AS A CYCLE
     Route: 041
     Dates: start: 20250507
  8. SODIUM CHLORIDE [Concomitant]
     Active Substance: SODIUM CHLORIDE
     Indication: Medication dilution
     Dosage: 100 ML (D1), Q21D
     Route: 041
     Dates: start: 20250507
  9. DEXTROSE [Concomitant]
     Active Substance: DEXTROSE MONOHYDRATE
     Indication: Medication dilution
     Dosage: 500 ML (D1), Q21D
     Route: 041
     Dates: start: 20250507

REACTIONS (5)
  - Coma hepatic [Unknown]
  - Myelosuppression [Unknown]
  - Diarrhoea [Unknown]
  - Renal impairment [Unknown]
  - Hepatic failure [Unknown]

NARRATIVE: CASE EVENT DATE: 20250512
